FAERS Safety Report 19299786 (Version 2)
Quarter: 2021Q2

REPORT INFORMATION
  Report Type: Spontaneous
  Country: PL (occurrence: PL)
  Receive Date: 20210525
  Receipt Date: 20210607
  Transmission Date: 20210717
  Serious: Yes (Disabling)
  Sender: FDA-Public Use
  Company Number: PL-DENTSPLY-2021SCDP000157

PATIENT
  Sex: Male

DRUGS (1)
  1. MEPIVACAINE HCL [Suspect]
     Active Substance: MEPIVACAINE HYDROCHLORIDE
     Indication: DENTAL LOCAL ANAESTHESIA
     Dosage: UNK SOLUTION FOR INJECTION IN CARTRIDGE
     Route: 004
     Dates: start: 20210429, end: 20210429

REACTIONS (2)
  - Procedural pain [Recovered/Resolved]
  - Hypogeusia [None]

NARRATIVE: CASE EVENT DATE: 20210429
